FAERS Safety Report 19671915 (Version 1)
Quarter: 2021Q3

REPORT INFORMATION
  Report Type: Spontaneous
  Country: JP (occurrence: JP)
  Receive Date: 20210806
  Receipt Date: 20210806
  Transmission Date: 20211014
  Serious: Yes (Other)
  Sender: FDA-Public Use
  Company Number: JP-BAXTER-2021BAX023869

PATIENT
  Age: 70 Year
  Sex: Female

DRUGS (2)
  1. ENDOXAN 1G [Suspect]
     Active Substance: CYCLOPHOSPHAMIDE
     Indication: DERMATOMYOSITIS
     Route: 065
  2. TACROLIMUS HYDRATE [Concomitant]
     Active Substance: TACROLIMUS
     Indication: DERMATOMYOSITIS
     Route: 065

REACTIONS (3)
  - Fungal infection [Recovering/Resolving]
  - Pneumomediastinum [Recovering/Resolving]
  - Cytomegalovirus infection [Recovering/Resolving]
